FAERS Safety Report 23795878 (Version 1)
Quarter: 2024Q2

REPORT INFORMATION
  Report Type: Spontaneous
  Country: US (occurrence: US)
  Receive Date: 20240429
  Receipt Date: 20240429
  Transmission Date: 20240716
  Serious: No
  Sender: FDA-Public Use
  Company Number: US-BIOGEN-2022BI01145254

PATIENT
  Age: 64 Year
  Sex: Female

DRUGS (2)
  1. VUMERITY [Suspect]
     Active Substance: DIROXIMEL FUMARATE
     Indication: Multiple sclerosis
     Route: 050
     Dates: start: 20220725, end: 20220801
  2. VUMERITY [Suspect]
     Active Substance: DIROXIMEL FUMARATE
     Route: 050
     Dates: start: 20220802

REACTIONS (8)
  - Malaise [Not Recovered/Not Resolved]
  - Confusional state [Not Recovered/Not Resolved]
  - Headache [Not Recovered/Not Resolved]
  - Gait disturbance [Not Recovered/Not Resolved]
  - Somnolence [Not Recovered/Not Resolved]
  - Feeling abnormal [Unknown]
  - Fatigue [Unknown]
  - Limb discomfort [Unknown]

NARRATIVE: CASE EVENT DATE: 20220701
